FAERS Safety Report 5508928-6 (Version None)
Quarter: 2007Q4

REPORT INFORMATION
  Report Type: 
  Country: None (occurrence: None)
  Receive Date: 20071031
  Receipt Date: 20070802
  Transmission Date: 20080405
  Serious: No
  Sender: FDA-Public Use
  Company Number: 2007PV033251

PATIENT
  Age: 45 Year
  Sex: Male

DRUGS (3)
  1. SYMLIN [Suspect]
     Dosage: 60 MCG
     Dates: start: 20070401
  2. VITAMIN B-12 [Concomitant]
  3. INSULIN [Concomitant]

REACTIONS (1)
  - DRUG INEFFECTIVE [None]
